FAERS Safety Report 8415409-9 (Version None)
Quarter: 2012Q2

REPORT INFORMATION
  Report Type: 
  Country: None (occurrence: None)
  Receive Date: 20120606
  Receipt Date: 20120529
  Transmission Date: 20120825
  Serious: Yes (Death, Hospitalization)
  Sender: FDA-Public Use
  Company Number: US-BAYER-200910978NA

PATIENT
  Age: 59 Year
  Sex: Female
  Weight: 61.364 kg

DRUGS (3)
  1. PLACEBO [Suspect]
     Dosage: 400 MG, BID
     Route: 048
     Dates: start: 20081215, end: 20081227
  2. PLACEBO (12741) (SORAFENIB) [Suspect]
     Indication: BREAST CANCER METASTATIC
     Dosage: 400 MG, BID
     Route: 048
     Dates: start: 20080926, end: 20081212
  3. GEMZAR [Suspect]
     Indication: BREAST CANCER METASTATIC
     Dosage: DAY 1 AND DAY 8 OF 21 DAY CYCLE
     Route: 042
     Dates: start: 20080926, end: 20081222

REACTIONS (3)
  - ASTHENIA [None]
  - PNEUMONIA [None]
  - BREAST CANCER METASTATIC [None]
